FAERS Safety Report 9593074 (Version 3)
Quarter: 2013Q4

REPORT INFORMATION
  Report Type: Report from Study
  Country: JP (occurrence: JP)
  Receive Date: 20131004
  Receipt Date: 20131211
  Transmission Date: 20140711
  Serious: Yes (Hospitalization, Other)
  Sender: FDA-Public Use
  Company Number: JP-ASTELLAS-2013JP010045

PATIENT
  Age: 87 Year
  Sex: Female
  Weight: 35 kg

DRUGS (16)
  1. TACROLIMUS CAPSULES [Suspect]
     Indication: RHEUMATOID ARTHRITIS
     Dosage: 1 MG, UID/QD
     Route: 048
     Dates: start: 20121212
  2. CELECOX [Suspect]
     Indication: RHEUMATOID ARTHRITIS
     Dosage: 100 MG, BID
     Route: 048
  3. ORENCIA [Suspect]
     Indication: RHEUMATOID ARTHRITIS
     Route: 065
  4. LENDORMIN [Suspect]
     Indication: INSOMNIA
     Dosage: 0.25 MG, UID/QD
     Route: 048
     Dates: start: 20120627
  5. ROZEREM [Suspect]
     Indication: INSOMNIA
     Dosage: 8 MG, UID/QD
     Route: 048
     Dates: start: 20121114
  6. VESICARE [Concomitant]
     Indication: POLLAKIURIA
     Dosage: 5 MG, UID/QD
     Route: 048
  7. TEPRENONE [Concomitant]
     Indication: PROPHYLAXIS
     Dosage: 1.5 G, UNKNOWN/D
     Route: 048
     Dates: start: 20120822
  8. BAYASPIRIN [Concomitant]
     Indication: ANGINA PECTORIS
     Dosage: 100 MG, UID/QD
     Route: 048
  9. CONIEL [Concomitant]
     Indication: HYPERTENSION
     Dosage: 8 MG, UNKNOWN/D
     Route: 048
     Dates: end: 20130419
  10. CONIEL [Concomitant]
     Indication: ANGINA PECTORIS
     Dosage: UNK
     Route: 048
     Dates: start: 20130420
  11. ITOROL [Concomitant]
     Indication: ANGINA PECTORIS
     Dosage: 40 MG, UNKNOWN/D
     Route: 048
     Dates: end: 20130419
  12. ITOROL [Concomitant]
     Indication: ANGINA PECTORIS
     Dosage: UNK
     Route: 048
     Dates: start: 20130420
  13. NEXIUM                             /01479302/ [Concomitant]
     Indication: PROPHYLAXIS
     Dosage: 20 MG, UNKNOWN/D
     Route: 048
  14. EURODIN                            /00425901/ [Concomitant]
     Indication: INSOMNIA
     Dosage: 2 MG, UNKNOWN/D
     Route: 048
  15. MARZULENE S [Concomitant]
     Indication: PROPHYLAXIS
     Dosage: 2 G, UNKNOWN/D
     Route: 048
  16. ANTIBACTERIAL DRUG [Concomitant]
     Indication: PNEUMONIA
     Route: 065

REACTIONS (3)
  - Pneumonia [Recovering/Resolving]
  - Angina pectoris [Recovering/Resolving]
  - Femoral neck fracture [Not Recovered/Not Resolved]
